FAERS Safety Report 8418028 (Version 2)
Quarter: 2012Q4

REPORT INFORMATION
  Report Type: Spontaneous
  Country: US (occurrence: None)
  Receive Date: 20120208
  Receipt Date: 20120831
  Transmission Date: 20130627
  Serious: Yes (Other)
  Sender: FDA-Public Use
  Company Number: DSA_48817_2012

PATIENT
  Sex: Female
  Weight: 44.45 kg

DRUGS (16)
  1. XENAZINE [Suspect]
     Indication: HUNTINGTON^S DISEASE
     Dosage: (12.5 MG TID ORAL), (12.5 MG BID ORAL)
     Route: 048
     Dates: end: 20110914
  2. XENAZINE [Suspect]
     Indication: HUNTINGTON^S DISEASE
     Dosage: (12.5 MG TID ORAL), (12.5 MG BID ORAL)
     Route: 048
     Dates: start: 20110915
  3. XENAZINE [Suspect]
     Indication: HUNTINGTON^S DISEASE
     Route: 048
     Dates: end: 2012
  4. XENAZINE [Suspect]
     Indication: HUNTINGTON^S DISEASE
     Route: 048
     Dates: end: 2012
  5. ACETAMINOPHEN [Concomitant]
  6. ATIVAN [Concomitant]
  7. CALCIUM CARBONATE W/VITAMIN D NOS [Concomitant]
  8. GUAIFENESIN DM [Concomitant]
  9. ERGOCALCIFEROL [Concomitant]
  10. HYDROCHLOROTHIAZIDE [Concomitant]
  11. MAGNESIUM HYDROXIDE [Concomitant]
  12. METFORMIN HYDROCHLORIDE [Concomitant]
  13. METHIMAZOLE [Concomitant]
  14. RISPERDAL [Concomitant]
  15. TEMAZEPAM [Concomitant]
  16. UTI-STAT [Concomitant]

REACTIONS (6)
  - DEPRESSION [None]
  - ASTHENIA [None]
  - HUNTINGTON^S DISEASE [None]
  - AGITATION [None]
  - IRRITABILITY [None]
  - CONDITION AGGRAVATED [None]
